FAERS Safety Report 5816680-X (Version None)
Quarter: 2008Q3

REPORT INFORMATION
  Report Type: 
  Country: None (occurrence: None)
  Receive Date: 20080721
  Receipt Date: 20070702
  Transmission Date: 20090109
  Serious: No
  Sender: FDA-Public Use
  Company Number: US-BRISTOL-MYERS SQUIBB COMPANY-13832738

PATIENT
  Age: 42 Year
  Sex: Female

DRUGS (2)
  1. ESTRACE [Suspect]
  2. GONAL-F [Suspect]

REACTIONS (1)
  - DRUG INEFFECTIVE [None]
